FAERS Safety Report 20640339 (Version 2)
Quarter: 2024Q3

REPORT INFORMATION
  Report Type: Report from Study
  Country: US (occurrence: US)
  Receive Date: 20220327
  Receipt Date: 20240730
  Transmission Date: 20241017
  Serious: Yes (Hospitalization, Other)
  Sender: ROCHE
  Company Number: US-ROCHE-3058260

PATIENT
  Age: 55 Year
  Sex: Male

DRUGS (1)
  1. OCREVUS [Suspect]
     Active Substance: OCRELIZUMAB
     Indication: Multiple sclerosis
     Dosage: INFUSE 600 MG EVERY 6 MONTHS
     Route: 042

REACTIONS (6)
  - COVID-19 [Recovered/Resolved]
  - Decubitus ulcer [Recovered/Resolved]
  - Infection [Recovered/Resolved]
  - Staphylococcal infection [Not Recovered/Not Resolved]
  - Brain injury [Not Recovered/Not Resolved]
  - Hypokinesia [Not Recovered/Not Resolved]

NARRATIVE: CASE EVENT DATE: 20211224
